FAERS Safety Report 9805362 (Version 1)
Quarter: 2014Q1

REPORT INFORMATION
  Report Type: Spontaneous
  Country: US (occurrence: US)
  Receive Date: 20140109
  Receipt Date: 20140109
  Transmission Date: 20141002
  Serious: No
  Sender: FDA-Public Use
  Company Number: US-PFIZER INC-2014003620

PATIENT
  Sex: Female

DRUGS (2)
  1. ESTRING [Suspect]
     Dosage: UNK
  2. AMOXICILLIN [Concomitant]
     Dosage: UNK

REACTIONS (2)
  - Vulvovaginal mycotic infection [Unknown]
  - Vulvovaginal pain [Unknown]
